FAERS Safety Report 24958890 (Version 2)
Quarter: 2025Q1

REPORT INFORMATION
  Report Type: Spontaneous
  Country: US (occurrence: US)
  Receive Date: 20250212
  Receipt Date: 20250217
  Transmission Date: 20250409
  Serious: No
  Sender: Haleon PLC
  Company Number: US-HALEON-2227610

PATIENT
  Age: 61 Year

DRUGS (1)
  1. SENSODYNE PRONAMEL ACTIVE SHIELD COOL MINT [Suspect]
     Active Substance: POTASSIUM NITRATE\SODIUM FLUORIDE
     Indication: Dental disorder prophylaxis

REACTIONS (3)
  - Tooth deposit [Recovered/Resolved]
  - Product complaint [Unknown]
  - Tooth disorder [Recovered/Resolved]
